FAERS Safety Report 12851917 (Version 1)
Quarter: 2016Q4

REPORT INFORMATION
  Report Type: Report from Study
  Country: US (occurrence: US)
  Receive Date: 20161017
  Receipt Date: 20161017
  Transmission Date: 20170207
  Serious: No
  Sender: FDA-Public Use
  Company Number: PHEH2016US026627

PATIENT
  Weight: 110.1 kg

DRUGS (1)
  1. AFINITOR [Suspect]
     Active Substance: EVEROLIMUS
     Indication: RENAL CANCER
     Dosage: 2.5 MG, QD
     Route: 048
     Dates: start: 20161005

REACTIONS (1)
  - Diarrhoea [Unknown]
